FAERS Safety Report 19039756 (Version 2)
Quarter: 2021Q2

REPORT INFORMATION
  Report Type: Spontaneous
  Country: US (occurrence: US)
  Receive Date: 20210322
  Receipt Date: 20210618
  Transmission Date: 20210717
  Serious: No
  Sender: FDA-Public Use
  Company Number: US-BIOHAVEN PHARMACEUTICALS-2021BHV00266

PATIENT
  Age: 27 Year
  Weight: 79.37 kg

DRUGS (4)
  1. PRENATAL VITAMIN [Concomitant]
     Active Substance: VITAMINS
  2. NURTEC ODT [Suspect]
     Active Substance: RIMEGEPANT SULFATE
     Indication: MIGRAINE WITH AURA
     Dosage: 75 MG, ONCE
     Route: 060
     Dates: start: 20210213, end: 20210213
  3. PROZAC [Concomitant]
     Active Substance: FLUOXETINE HYDROCHLORIDE
     Dosage: 20 MG, 1X/DAY
  4. POTASSIUM CITRATE. [Concomitant]
     Active Substance: POTASSIUM CITRATE
     Dosage: 1080 MEQ, 3X/DAY

REACTIONS (3)
  - Vomiting [Unknown]
  - Headache [Recovered/Resolved]
  - Nausea [Recovered/Resolved]

NARRATIVE: CASE EVENT DATE: 202102
